FAERS Safety Report 7393363-9 (Version None)
Quarter: 2011Q2

REPORT INFORMATION
  Report Type: 
  Country: None (occurrence: None)
  Receive Date: 20110405
  Receipt Date: 20110330
  Transmission Date: 20111010
  Serious: No
  Sender: FDA-Public Use
  Company Number: US-BIOGENIDEC-2011BI012189

PATIENT
  Age: 35 Year
  Sex: Female

DRUGS (5)
  1. ANTI-ANXIETY MEDICATION (NOS) [Concomitant]
     Indication: SLEEP DISORDER
  2. ANTI-SEIZURE MEDICATION (NOS) [Concomitant]
     Indication: SLEEP DISORDER
  3. TYSABRI [Suspect]
     Route: 042
     Dates: start: 20090710, end: 20100302
  4. TYSABRI [Suspect]
     Indication: MULTIPLE SCLEROSIS
     Route: 042
     Dates: start: 20100910
  5. ANTI-ANXIETY MEDICATION (NOS) [Concomitant]
     Indication: ANXIETY

REACTIONS (2)
  - INSOMNIA [None]
  - FATIGUE [None]
